FAERS Safety Report 18061329 (Version 1)
Quarter: 2020Q3

REPORT INFORMATION
  Report Type: Report from Study
  Country: CA (occurrence: CA)
  Receive Date: 20200723
  Receipt Date: 20200723
  Transmission Date: 20201103
  Serious: Yes (Hospitalization)
  Sender: FDA-Public Use
  Company Number: CA-MYLANLABS-2020M1066418

PATIENT
  Age: 67 Year
  Sex: Female

DRUGS (1)
  1. TOBRAMYCIN. [Suspect]
     Active Substance: TOBRAMYCIN
     Indication: CYSTIC FIBROSIS
     Dosage: UNK
     Dates: end: 2020

REACTIONS (2)
  - Illness [Unknown]
  - Hospitalisation [Unknown]

NARRATIVE: CASE EVENT DATE: 202002
